FAERS Safety Report 18756020 (Version 1)
Quarter: 2021Q1

REPORT INFORMATION
  Report Type: Spontaneous
  Country: US (occurrence: US)
  Receive Date: 20210116
  Receipt Date: 20210116
  Transmission Date: 20210419
  Serious: Yes (Other)
  Sender: FDA-Public Use
  Company Number: None

PATIENT
  Age: 30 Year
  Sex: Female
  Weight: 81 kg

DRUGS (3)
  1. BUPROPION HYDROCHLORIDE XL [Suspect]
     Active Substance: BUPROPION HYDROCHLORIDE
     Indication: RESTLESS LEGS SYNDROME
     Dosage: ?          QUANTITY:1 TABLET(S);?
     Route: 048
     Dates: start: 20210114, end: 20210116
  2. BUPROPION HYDROCHLORIDE XL [Suspect]
     Active Substance: BUPROPION HYDROCHLORIDE
     Indication: DEPRESSION
     Dosage: ?          QUANTITY:1 TABLET(S);?
     Route: 048
     Dates: start: 20210114, end: 20210116
  3. WELLBUTRIN (BUPROPION GENERIC) [Concomitant]

REACTIONS (10)
  - Nausea [None]
  - Product substitution issue [None]
  - Hyperhidrosis [None]
  - Product quality issue [None]
  - Product quality control issue [None]
  - Tremor [None]
  - Head discomfort [None]
  - Feeding disorder [None]
  - Insomnia [None]
  - Headache [None]

NARRATIVE: CASE EVENT DATE: 20210115
